FAERS Safety Report 9882678 (Version 3)
Quarter: 2015Q2

REPORT INFORMATION
  Report Type: Report from Study
  Country: JP (occurrence: JP)
  Receive Date: 20140207
  Receipt Date: 20150419
  Transmission Date: 20150821
  Serious: Yes (Death, Life-Threatening, Other)
  Sender: FDA-Public Use
  Company Number: JP-009507513-1402JPN003136

PATIENT
  Age: 77 Year
  Sex: Female
  Weight: 41 kg

DRUGS (13)
  1. TEMOZOLOMIDE. [Suspect]
     Active Substance: TEMOZOLOMIDE
     Indication: ANAPLASTIC ASTROCYTOMA
     Dosage: 75 MG/M2, QD
     Route: 041
     Dates: start: 20110111, end: 20110122
  2. VANCOMYCIN [Suspect]
     Active Substance: VANCOMYCIN
     Indication: PNEUMONIA
     Dosage: UNK
     Route: 041
     Dates: start: 20110128, end: 20110131
  3. CARDENALIN [Concomitant]
     Active Substance: DOXAZOSIN MESYLATE
     Dosage: UNK
     Route: 048
     Dates: start: 20101116, end: 20110209
  4. MAGLAX (MAGNESIUM OXIDE) [Concomitant]
     Active Substance: MAGNESIUM OXIDE
     Dosage: UNK
     Route: 048
     Dates: start: 20101215, end: 20110209
  5. PRIMPERAN [Concomitant]
     Active Substance: METOCLOPRAMIDE HYDROCHLORIDE
     Indication: PROPHYLAXIS
     Dosage: UNK
     Route: 048
     Dates: start: 20110115, end: 20110131
  6. FUNGUARD [Suspect]
     Active Substance: MICAFUNGIN SODIUM
     Indication: FUNGAL INFECTION
     Dosage: UNK
     Route: 041
     Dates: start: 20110209, end: 20110215
  7. FRUCTOSE (+) GLYCERIN [Concomitant]
     Dosage: UNK
     Route: 041
     Dates: start: 20100108, end: 20110206
  8. CONIEL [Concomitant]
     Active Substance: BENIDIPINE HYDROCHLORIDE
     Dosage: UNK
     Route: 048
     Dates: start: 20101116, end: 20110209
  9. PREDNISOLONE. [Concomitant]
     Active Substance: PREDNISOLONE
     Dosage: UNK
     Route: 048
     Dates: start: 20101122, end: 20110215
  10. NAVOBAN [Concomitant]
     Active Substance: TROPISETRON HYDROCHLORIDE
     Indication: PROPHYLAXIS
     Dosage: UNK
     Route: 048
     Dates: start: 20110111, end: 20110114
  11. PRODIF [Suspect]
     Active Substance: FOSFLUCONAZOLE
     Indication: FUNGAL INFECTION
     Dosage: UNK
     Route: 041
     Dates: start: 20110124, end: 20110208
  12. WARFARIN [Concomitant]
     Active Substance: WARFARIN
     Dosage: UNK
     Route: 048
     Dates: start: 20101213, end: 20110215
  13. TAKEPRON [Concomitant]
     Active Substance: LANSOPRAZOLE
     Dosage: UNK
     Route: 048
     Dates: start: 20101116, end: 20110215

REACTIONS (19)
  - Fungal infection [Fatal]
  - Hepatic function abnormal [Not Recovered/Not Resolved]
  - Anaemia [Fatal]
  - Monocyte count decreased [Not Recovered/Not Resolved]
  - Septic shock [Fatal]
  - Pneumonia [Fatal]
  - Blood chloride increased [Not Recovered/Not Resolved]
  - Blood potassium decreased [Recovered/Resolved]
  - Blood urea increased [Not Recovered/Not Resolved]
  - Blood creatinine increased [Not Recovered/Not Resolved]
  - Lymphocyte count decreased [Not Recovered/Not Resolved]
  - Dry skin [Recovered/Resolved]
  - Restlessness [Recovered/Resolved]
  - Platelet count decreased [Not Recovered/Not Resolved]
  - Pyrexia [Fatal]
  - Multi-organ failure [Fatal]
  - Blood sodium increased [Not Recovered/Not Resolved]
  - Blood glucose increased [Not Recovered/Not Resolved]
  - Sepsis [Fatal]

NARRATIVE: CASE EVENT DATE: 20110114
